FAERS Safety Report 9679058 (Version 1)
Quarter: 2013Q4

REPORT INFORMATION
  Report Type: Spontaneous
  Country: US (occurrence: None)
  Receive Date: 20131107
  Receipt Date: 20131107
  Transmission Date: 20140711
  Serious: Yes (Death, Hospitalization, Other)
  Sender: FDA-Public Use
  Company Number: ACO_39273_2013

PATIENT
  Age: 45 Year
  Sex: Male

DRUGS (1)
  1. AMPYRA [Suspect]
     Indication: PRODUCT USED FOR UNKNOWN INDICATION
     Dosage: UNKNOWN

REACTIONS (5)
  - Pneumonia aspiration [None]
  - Infection [None]
  - Decubitus ulcer [None]
  - Multiple sclerosis [None]
  - Disease progression [None]
